FAERS Safety Report 6285331-5 (Version None)
Quarter: 2009Q3

REPORT INFORMATION
  Report Type: 
  Country: None (occurrence: None)
  Receive Date: 20090727
  Receipt Date: 20090715
  Transmission Date: 20100115
  Serious: Yes (Hospitalization)
  Sender: FDA-Public Use
  Company Number: GB-CELGENEUS-167-20484-09071122

PATIENT
  Age: 55 Year
  Sex: Female

DRUGS (5)
  1. INNOHEP [Suspect]
     Indication: THROMBOSIS PROPHYLAXIS
     Route: 058
     Dates: start: 20090605, end: 20090605
  2. CYCLIZINE [Suspect]
     Indication: PAIN
     Route: 051
     Dates: start: 20090604
  3. TRAMADOL [Suspect]
     Indication: PAIN
     Route: 048
     Dates: start: 20090604
  4. IBUPROFEN [Concomitant]
     Indication: PAIN
     Route: 048
  5. ACETAMINOPHEN [Concomitant]
     Indication: PAIN
     Route: 048
     Dates: start: 20090604

REACTIONS (4)
  - ERYTHEMA [None]
  - LIP SWELLING [None]
  - PRURITUS [None]
  - RASH GENERALISED [None]
